FAERS Safety Report 7218194-1 (Version None)
Quarter: 2011Q1

REPORT INFORMATION
  Report Type: 
  Country: None (occurrence: None)
  Receive Date: 20110110
  Receipt Date: 20101227
  Transmission Date: 20110831
  Serious: Yes (Hospitalization)
  Sender: FDA-Public Use
  Company Number: DE-GENENTECH-310470

PATIENT
  Sex: Male
  Weight: 83 kg

DRUGS (8)
  1. PREDNISONE [Concomitant]
     Indication: PREMEDICATION
     Dosage: 100 MG, UNK
     Dates: start: 20101012, end: 20101102
  2. MABTHERA [Suspect]
     Dosage: UNK
     Route: 042
     Dates: start: 20081201, end: 20081201
  3. METOPROLOL [Concomitant]
     Indication: ARRHYTHMIA
     Dosage: 47.5 MG, UNK
     Route: 048
     Dates: start: 20101014
  4. TAVEGIL [Concomitant]
     Indication: PREMEDICATION
     Dosage: 2 MG, UNK
     Route: 042
     Dates: start: 20101012, end: 20101102
  5. PARACETAMOL [Concomitant]
     Indication: PREMEDICATION
     Dosage: 1 G, UNK
     Route: 048
     Dates: start: 20101012, end: 20101102
  6. MABTHERA [Suspect]
     Indication: LYMPHOPLASMACYTOID LYMPHOMA/IMMUNOCYTOMA
     Dosage: 375 MG/M2, UNK
     Route: 042
     Dates: start: 20101012, end: 20101102
  7. MABTHERA [Suspect]
     Dosage: UNK
     Route: 042
     Dates: start: 20050201, end: 20050201
  8. MABTHERA [Suspect]
     Dosage: UNK
     Route: 042
     Dates: start: 20090101, end: 20090101

REACTIONS (1)
  - DELIRIUM [None]
